FAERS Safety Report 5436053-1 (Version None)
Quarter: 2007Q3

REPORT INFORMATION
  Report Type: 
  Country: None (occurrence: None)
  Receive Date: 20070831
  Receipt Date: 20070822
  Transmission Date: 20080115
  Serious: Yes (Hospitalization)
  Sender: FDA-Public Use
  Company Number: GB-AVENTIS-200717764GDDC

PATIENT
  Sex: Female

DRUGS (6)
  1. ARAVA [Suspect]
     Dosage: DOSE: UNK
     Dates: start: 20061001
  2. DOXAZOSIN MESYLATE [Concomitant]
     Dosage: DOSE: UNK
  3. OMEPRAZOLE [Concomitant]
     Dosage: DOSE: UNK
  4. FOLIC ACID [Concomitant]
     Dosage: DOSE: UNK
  5. TRIMAZOLE [Concomitant]
     Dosage: DOSE: UNK
  6. DICLOFENAC [Concomitant]
     Dosage: DOSE: UNK

REACTIONS (3)
  - HAEMOLYTIC URAEMIC SYNDROME [None]
  - RENAL FAILURE ACUTE [None]
  - THROMBOTIC THROMBOCYTOPENIC PURPURA [None]
